FAERS Safety Report 6888471-2 (Version None)
Quarter: 2010Q3

REPORT INFORMATION
  Report Type: 
  Country: None (occurrence: None)
  Receive Date: 20100730
  Receipt Date: 20100719
  Transmission Date: 20110219
  Serious: Yes (Hospitalization)
  Sender: FDA-Public Use
  Company Number: PHHY2010FR47734

PATIENT
  Sex: Male

DRUGS (8)
  1. TEGRETOL [Suspect]
     Dosage: 200 MG, QD
  2. TEGRETOL [Suspect]
     Dosage: 400 MG, QD
  3. ATHYMIL [Suspect]
     Dosage: 30 MG, QD
  4. ZOLPIDEM [Suspect]
     Dosage: 10 MG
  5. LEVOTHYROXINE SODIUM [Concomitant]
     Dosage: 100 MG, QD
  6. CRESTOR [Concomitant]
     Dosage: 10 MG, QD
  7. EZETROL [Concomitant]
     Dosage: 10 MG, QD
  8. ZYPREXA [Concomitant]
     Dosage: 20 MG, QD

REACTIONS (12)
  - ALTERED STATE OF CONSCIOUSNESS [None]
  - ANION GAP INCREASED [None]
  - BINOCULAR EYE MOVEMENT DISORDER [None]
  - BLOOD CREATINE INCREASED [None]
  - BLOOD UREA INCREASED [None]
  - COMA SCALE ABNORMAL [None]
  - HYPERLACTACIDAEMIA [None]
  - HYPOTENSION [None]
  - METABOLIC ACIDOSIS [None]
  - RENAL FAILURE [None]
  - SOMNOLENCE [None]
  - SUICIDE ATTEMPT [None]
